FAERS Safety Report 6590805-3 (Version None)
Quarter: 2010Q1

REPORT INFORMATION
  Report Type: 
  Country: None (occurrence: None)
  Receive Date: 20100219
  Receipt Date: 20100208
  Transmission Date: 20100710
  Serious: Yes (Hospitalization)
  Sender: FDA-Public Use
  Company Number: EC-PFIZER INC-2010020878

PATIENT
  Age: 12 Year
  Sex: Female

DRUGS (1)
  1. ZITHROMAX [Suspect]
     Indication: PHARYNGITIS
     Dosage: 2 G, SINGLE
     Route: 048
     Dates: start: 20091201, end: 20091201

REACTIONS (1)
  - GASTROENTERITIS [None]
